FAERS Safety Report 24952996 (Version 2)
Quarter: 2025Q1

REPORT INFORMATION
  Report Type: Spontaneous
  Country: JP (occurrence: JP)
  Receive Date: 20250211
  Receipt Date: 20250307
  Transmission Date: 20250409
  Serious: Yes (Hospitalization, Other)
  Sender: GALDERMA
  Company Number: JP-GALDERMA-JP2025001590

PATIENT

DRUGS (1)
  1. NEMOLIZUMAB [Suspect]
     Active Substance: NEMOLIZUMAB
     Indication: Dermatitis atopic
     Route: 058
     Dates: start: 20241025, end: 20241025

REACTIONS (1)
  - Intussusception [Unknown]

NARRATIVE: CASE EVENT DATE: 20241111
